FAERS Safety Report 7821779-2 (Version None)
Quarter: 2011Q4

REPORT INFORMATION
  Report Type: 
  Country: None (occurrence: None)
  Receive Date: 20111018
  Receipt Date: 20101115
  Transmission Date: 20120403
  Serious: No
  Sender: FDA-Public Use
  Company Number: US-ASTRAZENECA-2008UW07221

PATIENT
  Age: 88 Year
  Sex: Female
  Weight: 40.8 kg

DRUGS (10)
  1. FLONASE [Concomitant]
  2. DEPAKOTE [Concomitant]
  3. NEXIUM [Concomitant]
  4. ALBUTEROL [Concomitant]
  5. TEMAZEPAM [Concomitant]
  6. SYMBICORT [Suspect]
     Indication: ASTHMA
     Dosage: 80/4.5 UG 2 PUFFS DAILY
     Route: 055
     Dates: start: 20080408, end: 20080408
  7. SYMBICORT [Suspect]
     Dosage: 80/4.5 UG 1 PUFF ONCE DAILY
     Route: 055
     Dates: start: 20080409
  8. CARDURA [Concomitant]
  9. REMERON [Concomitant]
  10. SPIRIVA [Concomitant]

REACTIONS (6)
  - PALPITATIONS [None]
  - DYSPNOEA [None]
  - HEADACHE [None]
  - DISTRACTIBILITY [None]
  - DYSPHONIA [None]
  - NERVOUSNESS [None]
